FAERS Safety Report 8036399-7 (Version None)
Quarter: 2012Q1

REPORT INFORMATION
  Report Type: 
  Country: None (occurrence: None)
  Receive Date: 20120106
  Receipt Date: 20111228
  Transmission Date: 20120608
  Serious: Yes (Hospitalization)
  Sender: FDA-Public Use
  Company Number: 022426

PATIENT
  Age: 81 Year
  Sex: Male

DRUGS (1)
  1. MACUGEN [Suspect]
     Indication: AGE-RELATED MACULAR DEGENERATION
     Dosage: 0.3 MG, INTRAOCULAR
     Route: 031
     Dates: start: 20100128, end: 20100128

REACTIONS (2)
  - RETINAL HAEMORRHAGE [None]
  - VISUAL ACUITY REDUCED [None]
